FAERS Safety Report 8456212-3 (Version None)
Quarter: 2012Q2

REPORT INFORMATION
  Report Type: 
  Country: None (occurrence: None)
  Receive Date: 20120621
  Receipt Date: 20120611
  Transmission Date: 20120825
  Serious: No
  Sender: FDA-Public Use
  Company Number: IT-FRI-1000009739

PATIENT
  Age: 54 Year
  Sex: Male

DRUGS (2)
  1. CITALOPRAM HYDROBROMIDE [Suspect]
     Indication: DEPRESSION
     Route: 048
     Dates: start: 20090503, end: 20090526
  2. DULOXETIME HYDROCHLORIDE [Concomitant]
     Dosage: 60 MG

REACTIONS (1)
  - ACCOMMODATION DISORDER [None]
